FAERS Safety Report 9713640 (Version 2)
Quarter: 2015Q4

REPORT INFORMATION
  Report Type: Report from Study
  Country: US (occurrence: US)
  Receive Date: 20131126
  Receipt Date: 20151013
  Transmission Date: 20160305
  Serious: Yes (Hospitalization, Other)
  Sender: FDA-Public Use
  Company Number: US-ROCHE-1306837

PATIENT
  Age: 49 Year
  Sex: Female

DRUGS (11)
  1. NEXIUM [Concomitant]
     Active Substance: ESOMEPRAZOLE MAGNESIUM
     Route: 065
  2. FERROUS SULFATE [Concomitant]
     Active Substance: FERROUS SULFATE\FERROUS SULFATE, DRIED
     Dosage: 1 TABLET 3X/DAY
     Route: 065
  3. PREDNISONE. [Concomitant]
     Active Substance: PREDNISONE
     Route: 065
  4. FLONASE (UNITED STATES) [Concomitant]
     Dosage: 50MCG/ACT, 2 SPRAYS IN EACH NOSTRIL ONCE A DAY
     Route: 065
  5. ALBUTEROL SULFATE. [Concomitant]
     Active Substance: ALBUTEROL SULFATE
     Dosage: 3ML 3XS PER DAY PRN
     Route: 065
  6. XOLAIR [Suspect]
     Active Substance: OMALIZUMAB
     Indication: ASTHMA
     Route: 065
     Dates: start: 2012
  7. PROVENTIL HFA [Concomitant]
     Active Substance: ALBUTEROL SULFATE
     Dosage: 108MCG/ACT, 2 PUFFS EVERY 4-6HOURS PRN
     Route: 065
  8. EPIPEN [Concomitant]
     Active Substance: EPINEPHRINE
     Dosage: 2-PAK 0.3MG/0.3ML, DEVICE IM AS NEEDED
     Route: 030
  9. XOLAIR [Suspect]
     Active Substance: OMALIZUMAB
     Indication: RHINITIS ALLERGIC
  10. ADVAIR DISKUS [Concomitant]
     Active Substance: FLUTICASONE PROPIONATE\SALMETEROL XINAFOATE
     Dosage: 500-50MCG/DOSE, 1 PUFF TWICE A DAY
     Route: 065
  11. SINGULAIR [Concomitant]
     Active Substance: MONTELUKAST SODIUM
     Route: 065

REACTIONS (22)
  - Asthma [Unknown]
  - Tonsillar hypertrophy [Unknown]
  - Hyposmia [Unknown]
  - Blood immunoglobulin M increased [Unknown]
  - Chest discomfort [Unknown]
  - Nasal turbinate abnormality [Unknown]
  - Vitamin D decreased [Unknown]
  - Neutrophil count increased [Unknown]
  - Blood 25-hydroxycholecalciferol decreased [Unknown]
  - Gastrooesophageal reflux disease [Unknown]
  - Depression [Unknown]
  - Middle insomnia [Unknown]
  - Upper respiratory tract infection [Unknown]
  - Eye pruritus [Unknown]
  - Atopy [Unknown]
  - Blood immunoglobulin E increased [Unknown]
  - Blood immunoglobulin G increased [Unknown]
  - Eye movement disorder [Unknown]
  - Ocular hyperaemia [Unknown]
  - Nasal pruritus [Unknown]
  - Pruritus [Unknown]
  - Obstructive airways disorder [Unknown]

NARRATIVE: CASE EVENT DATE: 20130513
